FAERS Safety Report 19942111 (Version 2)
Quarter: 2021Q4

REPORT INFORMATION
  Report Type: Report from Study
  Country: DE (occurrence: DE)
  Receive Date: 20211012
  Receipt Date: 20211105
  Transmission Date: 20220303
  Serious: Yes (Other)
  Sender: FDA-Public Use
  Company Number: DE-BRISTOL-MYERS SQUIBB COMPANY-BMS-2021-073019

PATIENT
  Age: 61 Year
  Sex: Female

DRUGS (3)
  1. DASATINIB [Suspect]
     Active Substance: DASATINIB
     Indication: Chronic myeloid leukaemia
     Dosage: 100 MG, 7 DAYS PER WEEK
     Route: 065
     Dates: start: 20180816, end: 20181031
  2. DASATINIB [Suspect]
     Active Substance: DASATINIB
     Dosage: 80 MG, 7 DAYS PER WEEK
     Route: 065
     Dates: start: 20181101, end: 20200113
  3. DASATINIB [Suspect]
     Active Substance: DASATINIB
     Dosage: 100 MG, 7 DAYS PER WEEK
     Route: 065
     Dates: start: 20200114

REACTIONS (2)
  - Vaginal cellulitis [Recovered/Resolved]
  - Gastric disorder [Unknown]

NARRATIVE: CASE EVENT DATE: 20200813
